FAERS Safety Report 6447299-8 (Version None)
Quarter: 2009Q4

REPORT INFORMATION
  Report Type: 
  Country: None (occurrence: None)
  Receive Date: 20091119
  Receipt Date: 20091109
  Transmission Date: 20100525
  Serious: Yes (Hospitalization, Other)
  Sender: FDA-Public Use
  Company Number: US-AMGEN-QUU361674

PATIENT
  Sex: Female
  Weight: 87 kg

DRUGS (23)
  1. ENBREL [Suspect]
     Indication: ARTHRITIS
     Route: 058
     Dates: start: 20040704
  2. FOSAMAX [Concomitant]
  3. PREDNISONE [Concomitant]
  4. CELEBREX [Concomitant]
  5. ZOLOFT [Concomitant]
  6. FLAX SEED OIL [Concomitant]
  7. GLUCOSAMINE [Concomitant]
  8. CALCIUM [Concomitant]
  9. CENTRUM SILVER [Concomitant]
  10. VALTREX [Concomitant]
  11. FOLIC ACID [Concomitant]
  12. METHOTREXATE [Concomitant]
     Route: 048
  13. LUNESTA [Concomitant]
  14. KLONOPIN [Concomitant]
  15. TRAMADOL [Concomitant]
  16. TYLENOL (CAPLET) [Concomitant]
  17. VICODIN [Concomitant]
  18. HYDROCORTISONE [Concomitant]
     Route: 061
  19. UNSPECIFIED HERBAL PRODUCT [Concomitant]
  20. ASCORBIC ACID [Concomitant]
  21. VITAMIN B COMPLEX CAP [Concomitant]
  22. CHONDROITIN [Concomitant]
  23. UNSPECIFIED MEDICATION [Concomitant]

REACTIONS (9)
  - ASTHENIA [None]
  - COMPRESSION FRACTURE [None]
  - FOOT FRACTURE [None]
  - MUSCULOSKELETAL PAIN [None]
  - NERVE ROOT COMPRESSION [None]
  - OSTEOARTHRITIS [None]
  - PSORIASIS [None]
  - PSORIATIC ARTHROPATHY [None]
  - SPINAL DISORDER [None]
